FAERS Safety Report 25868096 (Version 1)
Quarter: 2025Q4

REPORT INFORMATION
  Report Type: Spontaneous
  Country: EU (occurrence: EU)
  Receive Date: 20251001
  Receipt Date: 20251001
  Transmission Date: 20260118
  Serious: Yes (Other)
  Sender: AUROBINDO
  Company Number: EU-LRB-01084253

PATIENT
  Age: 33 Year
  Sex: Female
  Weight: 81 kg

DRUGS (3)
  1. IBUPROFEN [Suspect]
     Active Substance: IBUPROFEN
     Indication: Juvenile idiopathic arthritis
     Dosage: 600 MILLIGRAM
     Route: 048
     Dates: start: 20220101
  2. IBUPROFEN [Suspect]
     Active Substance: IBUPROFEN
     Indication: Spondylitis
  3. MOUNJARO [Suspect]
     Active Substance: TIRZEPATIDE
     Indication: Weight control
     Dosage: 1 DOSAGE FORM, EVERY WEEK
     Route: 065
     Dates: start: 20250709

REACTIONS (1)
  - Hyperthyroidism [Not Recovered/Not Resolved]
